FAERS Safety Report 22206334 (Version 1)
Quarter: 2023Q2

REPORT INFORMATION
  Report Type: Spontaneous
  Country: US (occurrence: None)
  Receive Date: 20230412
  Receipt Date: 20230412
  Transmission Date: 20230721
  Serious: Yes (Death, Disabling)
  Sender: FDA-Public Use
  Company Number: None

PATIENT
  Age: 21 Year
  Sex: Male
  Weight: 57.15 kg

DRUGS (1)
  1. FINASTERIDE [Suspect]
     Active Substance: FINASTERIDE
     Indication: Alopecia

REACTIONS (6)
  - Temporomandibular joint syndrome [None]
  - Arthralgia [None]
  - Arthralgia [None]
  - Tinnitus [None]
  - Psoriasis [None]
  - Completed suicide [None]

NARRATIVE: CASE EVENT DATE: 20210213
